FAERS Safety Report 6149136-8 (Version None)
Quarter: 2009Q2

REPORT INFORMATION
  Report Type: 
  Country: None (occurrence: None)
  Receive Date: 20090407
  Receipt Date: 20090323
  Transmission Date: 20091009
  Serious: Yes (Death)
  Sender: FDA-Public Use
  Company Number: 2009000883

PATIENT
  Age: 75 Year
  Sex: Male
  Weight: 47.8 kg

DRUGS (7)
  1. ERLOTINIB (ERLOTINIB) (TABLET) (ERLOTINIB) [Suspect]
     Indication: LUNG ADENOCARCINOMA
     Dosage: (150 MG, QD), ORAL
     Route: 048
     Dates: start: 20080923, end: 20081005
  2. BUFFERIN [Concomitant]
  3. LANSOPRAZOLE [Concomitant]
  4. MEDICON (DEXTROMETHORPHAN HYDROBROMIDE) [Concomitant]
  5. ASVERIN (TIPEPIDINE HIBENZATE) [Concomitant]
  6. CODEINE PHOSPHATE [Concomitant]
  7. MAGNESIUM OXIDE [Concomitant]

REACTIONS (2)
  - INFECTION [None]
  - PNEUMONIA [None]
